FAERS Safety Report 8011388-7 (Version None)
Quarter: 2011Q4

REPORT INFORMATION
  Report Type: 
  Country: None (occurrence: None)
  Receive Date: 20111228
  Receipt Date: 20111219
  Transmission Date: 20120403
  Serious: Yes (Death)
  Sender: FDA-Public Use
  Company Number: US-PFIZER INC-2011309398

PATIENT
  Age: 28 Year
  Sex: Male

DRUGS (5)
  1. GABAPENTIN [Suspect]
     Route: 065
  2. KETAMINE HCL [Suspect]
     Route: 065
  3. ACETAMINOPHEN AND HYDROCODONE BITARTRATE [Suspect]
     Route: 065
  4. CLONIDINE [Suspect]
     Route: 065
  5. OXYMORPHONE [Suspect]
     Route: 065

REACTIONS (1)
  - DRUG ABUSE [None]
